FAERS Safety Report 10051101 (Version 1)
Quarter: 2014Q2

REPORT INFORMATION
  Report Type: Spontaneous
  Country: US (occurrence: US)
  Receive Date: 20140401
  Receipt Date: 20140401
  Transmission Date: 20141212
  Serious: No
  Sender: FDA-Public Use
  Company Number: US-ASTRAZENECA-2013SE46862

PATIENT
  Sex: Female

DRUGS (4)
  1. NEXIUM [Suspect]
     Indication: FLATULENCE
     Route: 048
     Dates: start: 20130506, end: 20130606
  2. NEXIUM [Suspect]
     Indication: PAIN
     Route: 048
     Dates: start: 20130506, end: 20130606
  3. ENTOCORT EC [Suspect]
     Indication: CROHN^S DISEASE
     Dosage: UNK
     Route: 048
     Dates: start: 201304, end: 20130506
  4. UCERIS [Concomitant]
     Indication: CROHN^S DISEASE

REACTIONS (4)
  - Abnormal faeces [Unknown]
  - Flatulence [Unknown]
  - Pain [Unknown]
  - Off label use [Unknown]
